FAERS Safety Report 10248672 (Version 2)
Quarter: 2014Q2

REPORT INFORMATION
  Report Type: Spontaneous
  Country: SE (occurrence: SE)
  Receive Date: 20140620
  Receipt Date: 20140620
  Transmission Date: 20141212
  Serious: Yes (Hospitalization)
  Sender: FDA-Public Use
  Company Number: SE-009507513-1401SWE013959

PATIENT
  Age: 16 Year
  Sex: Male

DRUGS (1)
  1. TIMOTHY GRASS POLLEN ALLERGEN EXTRACT [Suspect]
     Dosage: 75000 SQ-T1, DF, QD,ORAL LYOPHILISATE
     Route: 060
     Dates: start: 2011, end: 20130306

REACTIONS (4)
  - Interstitial lung disease [Unknown]
  - Pulmonary arterial hypertension [Unknown]
  - Mycotic allergy [Unknown]
  - Lymphadenopathy [Unknown]
